FAERS Safety Report 5646189-8 (Version None)
Quarter: 2008Q1

REPORT INFORMATION
  Report Type: 
  Country: None (occurrence: None)
  Receive Date: 20080227
  Receipt Date: 20080221
  Transmission Date: 20080703
  Serious: Yes (Life-Threatening, Other)
  Sender: FDA-Public Use
  Company Number: 056-21880-07120611

PATIENT
  Sex: Male

DRUGS (1)
  1. REVLIMID [Suspect]
     Indication: MULTIPLE MYELOMA
     Dosage: 25 MG, 1 IN 1 D, ORAL
     Route: 048
     Dates: start: 20071011

REACTIONS (6)
  - CARDIAC ARREST [None]
  - HYPOXIA [None]
  - LUNG DISORDER [None]
  - NEUTROPENIA [None]
  - PNEUMOCOCCAL INFECTION [None]
  - SEPTIC SHOCK [None]
